FAERS Safety Report 7999766-3 (Version None)
Quarter: 2011Q4

REPORT INFORMATION
  Report Type: 
  Country: None (occurrence: None)
  Receive Date: 20111222
  Receipt Date: 20111209
  Transmission Date: 20120403
  Serious: Yes (Other)
  Sender: FDA-Public Use
  Company Number: JP-BRISTOL-MYERS SQUIBB COMPANY-16261570

PATIENT
  Age: 38 Year
  Sex: Male

DRUGS (1)
  1. MAXIPIME [Suspect]
     Indication: CARDIOMYOPATHY
     Route: 042
     Dates: start: 20111120, end: 20111130

REACTIONS (2)
  - DYSLALIA [None]
  - MONOPLEGIA [None]
